FAERS Safety Report 6321591-X (Version None)
Quarter: 2009Q3

REPORT INFORMATION
  Report Type: 
  Country: None (occurrence: None)
  Receive Date: 20090820
  Receipt Date: 20090820
  Transmission Date: 20100115
  Serious: Yes (Other)
  Sender: FDA-Public Use
  Company Number: None

PATIENT
  Age: 32 Year
  Sex: Female
  Weight: 73.9363 kg

DRUGS (1)
  1. TRI LO SPRINTEC [Suspect]
     Indication: CONTRACEPTION
     Dosage: 1 TABLET EVERY DAY PO
     Route: 048
     Dates: start: 20090716, end: 20090815

REACTIONS (6)
  - ANXIETY [None]
  - CRYING [None]
  - DEPRESSED MOOD [None]
  - EMOTIONAL DISORDER [None]
  - MOOD SWINGS [None]
  - PRODUCT SUBSTITUTION ISSUE [None]
